FAERS Safety Report 15202674 (Version 1)
Quarter: 2018Q3

REPORT INFORMATION
  Report Type: Spontaneous
  Country: US (occurrence: US)
  Receive Date: 20180627
  Receipt Date: 20180627
  Transmission Date: 20181010
  Serious: Yes (Life-Threatening, Hospitalization, Disabling)
  Sender: FDA-Public Use
  Company Number: None

PATIENT
  Age: 71 Year
  Sex: Male
  Weight: 92.99 kg

DRUGS (19)
  1. SIMVASTIN [Concomitant]
     Active Substance: SIMVASTATIN
  2. ESZOPICLONE. [Concomitant]
     Active Substance: ESZOPICLONE
  3. FLUTICASONE PROPIONATE. [Concomitant]
     Active Substance: FLUTICASONE PROPIONATE
  4. D?3 [Concomitant]
     Active Substance: CHOLECALCIFEROL
  5. CINNAMON. [Concomitant]
     Active Substance: CINNAMON
  6. VICTOZA [Suspect]
     Active Substance: LIRAGLUTIDE
     Indication: TYPE 2 DIABETES MELLITUS
     Dosage: ?          QUANTITY:1.8 MG MILLIGRAM(S);?
     Dates: start: 2013, end: 20180607
  7. NOVOLOG [Concomitant]
     Active Substance: INSULIN ASPART
  8. LOTEMAX [Concomitant]
     Active Substance: LOTEPREDNOL ETABONATE
  9. CLARITIN [Concomitant]
     Active Substance: LORATADINE
  10. LATANOPROST. [Concomitant]
     Active Substance: LATANOPROST
  11. VITAMIN B12 [Concomitant]
     Active Substance: CYANOCOBALAMIN
  12. ASPRIN [Concomitant]
     Active Substance: ASPIRIN
  13. COMBIGAN [Concomitant]
     Active Substance: BRIMONIDINE TARTRATE\TIMOLOL MALEATE
  14. CEPHALEXIN. [Concomitant]
     Active Substance: CEPHALEXIN
  15. VITAMIN C [Concomitant]
     Active Substance: ASCORBIC ACID
  16. GARLIC. [Concomitant]
     Active Substance: GARLIC
  17. GLIPIZED [Concomitant]
  18. MULTIVIATMIN [Concomitant]
  19. ATENOL [Concomitant]
     Active Substance: ATENOLOL

REACTIONS (3)
  - Pancreatitis acute [None]
  - Abdominal pain upper [None]
  - Vomiting [None]

NARRATIVE: CASE EVENT DATE: 20180606
